FAERS Safety Report 9616273 (Version 1)
Quarter: 2013Q4

REPORT INFORMATION
  Report Type: Spontaneous
  Country: US (occurrence: None)
  Receive Date: 20131010
  Receipt Date: 20131010
  Transmission Date: 20140711
  Serious: No
  Sender: FDA-Public Use
  Company Number: None

PATIENT
  Age: 74 Year
  Sex: Female

DRUGS (1)
  1. EXJADE [Suspect]
     Indication: IRON OVERLOAD
     Dosage: 500MG  QD  PO
     Route: 048
     Dates: start: 20130830, end: 20131006

REACTIONS (3)
  - Dyspnoea [None]
  - Chest pain [None]
  - Back pain [None]
